FAERS Safety Report 23301314 (Version 3)
Quarter: 2024Q1

REPORT INFORMATION
  Report Type: Report from Study
  Country: US (occurrence: US)
  Receive Date: 20231215
  Receipt Date: 20240123
  Transmission Date: 20240409
  Serious: Yes (Other)
  Sender: FDA-Public Use
  Company Number: US-ABBVIE-5536014

PATIENT
  Sex: Female

DRUGS (3)
  1. SKYRIZI [Suspect]
     Active Substance: RISANKIZUMAB-RZAA
     Indication: Psoriatic arthropathy
     Dosage: WEEK 0?FORM STRENGTH: 150 MILLIGRAM
     Route: 058
     Dates: start: 20230816, end: 20230816
  2. SKYRIZI [Suspect]
     Active Substance: RISANKIZUMAB-RZAA
     Dosage: WEEK 4?FORM STRENGTH: 150 MILLIGRAM
     Route: 058
     Dates: start: 20230913, end: 20230913
  3. SKYRIZI [Suspect]
     Active Substance: RISANKIZUMAB-RZAA
     Dosage: FORM STRENGTH: 150 MILLIGRAM
     Route: 058
     Dates: start: 20231219

REACTIONS (13)
  - Meningitis aseptic [Not Recovered/Not Resolved]
  - Psoriatic arthropathy [Unknown]
  - Sinusitis [Unknown]
  - Psoriasis [Not Recovered/Not Resolved]
  - Rhinorrhoea [Unknown]
  - Therapeutic response shortened [Unknown]
  - Herpes zoster [Unknown]
  - Joint swelling [Recovered/Resolved]
  - Rash macular [Unknown]
  - Arthralgia [Not Recovered/Not Resolved]
  - Pain [Unknown]
  - Malaise [Not Recovered/Not Resolved]
  - Grip strength decreased [Unknown]

NARRATIVE: CASE EVENT DATE: 20230101
